FAERS Safety Report 25735200 (Version 1)
Quarter: 2025Q3

REPORT INFORMATION
  Report Type: Spontaneous
  Country: CO (occurrence: CO)
  Receive Date: 20250828
  Receipt Date: 20250828
  Transmission Date: 20251021
  Serious: Yes (Death, Hospitalization)
  Sender: BAYER HEALTHCARE PHARMACEUTICALS INC.
  Company Number: CO-BAYER-2025A113563

PATIENT
  Age: 59 Year
  Sex: Female
  Weight: 52 kg

DRUGS (1)
  1. ADEMPAS [Suspect]
     Active Substance: RIOCIGUAT
     Indication: Pulmonary arterial hypertension
     Dosage: 2.5 MG, TID
     Route: 048
     Dates: start: 20240604

REACTIONS (2)
  - Pulmonary hypertension [Fatal]
  - Influenza [None]

NARRATIVE: CASE EVENT DATE: 20250816
